FAERS Safety Report 6726533-0 (Version None)
Quarter: 2010Q2

REPORT INFORMATION
  Report Type: 
  Country: None (occurrence: None)
  Receive Date: 20100514
  Receipt Date: 20100503
  Transmission Date: 20101027
  Serious: Yes (Other)
  Sender: FDA-Public Use
  Company Number: PT-B.I. PHARMACEUTICALS,INC./RIDGEFIELD-2010-DE-02524BY

PATIENT
  Sex: Male

DRUGS (1)
  1. TELMISARTAN [Suspect]
     Indication: HYPERTENSION
     Route: 048

REACTIONS (1)
  - ORAL LICHEN PLANUS [None]
